FAERS Safety Report 16014764 (Version 1)
Quarter: 2019Q1

REPORT INFORMATION
  Report Type: Spontaneous
  Country: DE (occurrence: DE)
  Receive Date: 20190227
  Receipt Date: 20190227
  Transmission Date: 20190418
  Serious: Yes (Hospitalization)
  Sender: FDA-Public Use
  Company Number: PHHY2019DE042478

PATIENT
  Age: 25 Year
  Sex: Female

DRUGS (6)
  1. METHOTREXATE. [Suspect]
     Active Substance: METHOTREXATE
     Indication: PRODUCT USED FOR UNKNOWN INDICATION
     Dosage: 15 MG/KG, QW
     Route: 065
     Dates: start: 200902
  2. DEKRISTOL [Concomitant]
     Active Substance: CHOLECALCIFEROL
     Indication: PRODUCT USED FOR UNKNOWN INDICATION
     Dosage: UNK
     Route: 065
  3. REMICADE [Suspect]
     Active Substance: INFLIXIMAB
     Indication: RHEUMATOID ARTHRITIS
     Dosage: 300 MG, EVERY 6 WEEKS
     Route: 042
     Dates: start: 201307
  4. REMICADE [Suspect]
     Active Substance: INFLIXIMAB
     Dosage: 200 MG,  EVERY 6 WEEKS
     Route: 042
     Dates: start: 201307
  5. REMICADE [Suspect]
     Active Substance: INFLIXIMAB
     Dosage: 200 MG,  EVERY 6 WEEKS
     Route: 042
     Dates: start: 201410
  6. FOLIC ACID. [Concomitant]
     Active Substance: FOLIC ACID
     Indication: PRODUCT USED FOR UNKNOWN INDICATION
     Dosage: 10 MG, UNK ( 1 PER WEEK, DAY AFTER METHOTREXATE)
     Route: 065

REACTIONS (4)
  - Cystitis [Recovered/Resolved]
  - Contraindication to vaccination [Unknown]
  - Urinary tract infection [Recovered/Resolved]
  - Pyelonephritis [Recovered/Resolved]

NARRATIVE: CASE EVENT DATE: 201403
